FAERS Safety Report 5489821-4 (Version None)
Quarter: 2007Q4

REPORT INFORMATION
  Report Type: 
  Country: None (occurrence: None)
  Receive Date: 20071018
  Receipt Date: 20071015
  Transmission Date: 20080405
  Serious: Yes (Other)
  Sender: FDA-Public Use
  Company Number: CA-JNJFOC-20071004044

PATIENT
  Age: 55 Year
  Sex: Female

DRUGS (3)
  1. CONCERTA [Suspect]
     Indication: DRUG USE FOR UNKNOWN INDICATION
  2. CES [Suspect]
     Indication: DRUG USE FOR UNKNOWN INDICATION
  3. ROBAX [Concomitant]

REACTIONS (3)
  - CEREBRAL INFARCTION [None]
  - FACIAL PALSY [None]
  - MUSCULAR WEAKNESS [None]
